FAERS Safety Report 6779515 (Version 4)
Quarter: 2012Q4

REPORT INFORMATION
  Report Type: 
  Country: CA (occurrence: CA)
  Receive Date: 20081006
  Receipt Date: 20121106
  Transmission Date: 20130627
  Serious: Yes (Other)
  Sender: FDA-Public Use
  Company Number: PHHY2008CA04085

PATIENT
  Sex: Female

DRUGS (2)
  1. SANDOSTATIN LAR [Suspect]
     Indication: CARCINOID TUMOUR
     Dosage: 30 mg, QMO
     Route: 030
     Dates: start: 20060220, end: 20080206
  2. SANDOSTATIN LAR [Suspect]
     Dosage: 20 mg, QMO
     Route: 030
     Dates: start: 20080411, end: 20080827

REACTIONS (21)
  - Liver disorder [Unknown]
  - Blood pressure increased [Unknown]
  - Intestinal obstruction [Unknown]
  - Bile duct stone [Unknown]
  - Blood pressure systolic increased [Unknown]
  - Contusion [Unknown]
  - Discomfort [Unknown]
  - Induration [Unknown]
  - Heart rate decreased [Unknown]
  - Abdominal pain upper [Unknown]
  - Gastrointestinal pain [Recovered/Resolved]
  - Vomiting [Recovered/Resolved]
  - Abnormal faeces [Unknown]
  - Alopecia [Unknown]
  - Flatulence [Unknown]
  - Injection site induration [Unknown]
  - Abdominal distension [Unknown]
  - Abdominal pain [Recovered/Resolved]
  - Constipation [Recovered/Resolved]
  - Nausea [Recovered/Resolved]
  - Bowel movement irregularity [Recovered/Resolved]
